FAERS Safety Report 15318648 (Version 1)
Quarter: 2018Q3

REPORT INFORMATION
  Report Type: Other
  Country: HR (occurrence: HR)
  Receive Date: 20180826
  Receipt Date: 20180826
  Transmission Date: 20181010
  Serious: Yes (Other)
  Sender: FDA-Public Use
  Company Number: HR-DEXPHARM-20180618

PATIENT
  Age: 17 Year
  Sex: Male

DRUGS (2)
  1. DICLOFENAC [Suspect]
     Active Substance: DICLOFENAC
  2. VALPORIC ACID [Suspect]
     Active Substance: VALPROIC ACID

REACTIONS (2)
  - Dysplastic naevus [Unknown]
  - Toxic epidermal necrolysis [Unknown]
